FAERS Safety Report 5736199-4 (Version None)
Quarter: 2008Q2

REPORT INFORMATION
  Report Type: 
  Country: None (occurrence: None)
  Receive Date: 20080513
  Receipt Date: 20080506
  Transmission Date: 20081010
  Serious: Yes (Hospitalization)
  Sender: FDA-Public Use
  Company Number: US-SANOFI-SYNTHELABO-A03200801756

PATIENT
  Age: 47 Year
  Sex: Female

DRUGS (4)
  1. ELOXATIN [Suspect]
     Indication: RECTAL CANCER
     Dosage: TOTAL DOSE OF 180 MG
     Route: 042
     Dates: start: 20080430, end: 20080430
  2. ELOXATIN [Suspect]
     Dosage: UNK
     Route: 042
  3. FLUOROURACIL [Concomitant]
     Indication: RECTAL CANCER
     Route: 042
  4. LEUCOVORIN CALCIUM [Concomitant]
     Indication: RECTAL CANCER
     Route: 042

REACTIONS (4)
  - DYSARTHRIA [None]
  - PARAPARESIS [None]
  - PARESIS [None]
  - RESPIRATORY DISORDER [None]
